FAERS Safety Report 7164697-8 (Version None)
Quarter: 2010Q4

REPORT INFORMATION
  Report Type: 
  Country: None (occurrence: None)
  Receive Date: 20101215
  Receipt Date: 20101206
  Transmission Date: 20110411
  Serious: Yes (Other)
  Sender: FDA-Public Use
  Company Number: US-ABBOTT-10P-163-0690223-00

PATIENT
  Age: 28 Year
  Sex: Female

DRUGS (1)
  1. LUPRON DEPOT [Suspect]
     Indication: ENDOMETRIOSIS
     Dosage: 3 MONTH SHOT

REACTIONS (8)
  - ADENOCARCINOMA [None]
  - ANOVULATORY CYCLE [None]
  - CARCINOMA IN SITU [None]
  - FATIGUE [None]
  - MENSTRUAL DISORDER [None]
  - MUSCLE SPASMS [None]
  - PAIN [None]
  - PELVIC FLUID COLLECTION [None]
